FAERS Safety Report 7360460-3 (Version None)
Quarter: 2011Q1

REPORT INFORMATION
  Report Type: 
  Country: None (occurrence: None)
  Receive Date: 20110318
  Receipt Date: 20110307
  Transmission Date: 20110831
  Serious: Yes (Hospitalization)
  Sender: FDA-Public Use
  Company Number: US-JNJFOC-20110303388

PATIENT
  Age: 19 Year
  Sex: Female

DRUGS (3)
  1. STEROIDS NOS [Concomitant]
     Indication: CROHN'S DISEASE
     Route: 065
  2. MERCAPTOPURINE [Concomitant]
     Indication: CROHN'S DISEASE
  3. REMICADE [Suspect]
     Indication: CROHN'S DISEASE
     Dosage: RECEIVED 3 OR 4 INFUSIONS
     Route: 042

REACTIONS (4)
  - CYTOMEGALOVIRUS INFECTION [None]
  - ANTIBIOTIC RESISTANT STAPHYLOCOCCUS TEST [None]
  - LARGE INTESTINE PERFORATION [None]
  - ASPERGILLOSIS [None]
